FAERS Safety Report 10148510 (Version 1)
Quarter: 2014Q2

REPORT INFORMATION
  Report Type: Spontaneous
  Country: GB (occurrence: GB)
  Receive Date: 20140501
  Receipt Date: 20140501
  Transmission Date: 20141212
  Serious: Yes (Other)
  Sender: FDA-Public Use
  Company Number: GB-ABBVIE-14P-167-1232591-00

PATIENT
  Sex: Female

DRUGS (2)
  1. HUMIRA [Suspect]
     Indication: CROHN^S DISEASE
  2. HUMIRA [Suspect]

REACTIONS (5)
  - Unevaluable event [Unknown]
  - Surgery [Unknown]
  - Drug ineffective [Unknown]
  - Arthritis [Unknown]
  - Arthralgia [Unknown]
